FAERS Safety Report 18711910 (Version 1)
Quarter: 2021Q1

REPORT INFORMATION
  Report Type: Report from Study
  Country: US (occurrence: US)
  Receive Date: 20210107
  Receipt Date: 20210107
  Transmission Date: 20210419
  Serious: Yes (Other)
  Sender: FDA-Public Use
  Company Number: US-SUNOVION-2021SUN000010

PATIENT
  Age: 25 Year
  Sex: Female
  Weight: 74.83 kg

DRUGS (2)
  1. LATUDA [Suspect]
     Active Substance: LURASIDONE HYDROCHLORIDE
     Indication: BIPOLAR DISORDER
     Dosage: UNK
     Route: 048
  2. HYDROXYZINE [Suspect]
     Active Substance: HYDROXYZINE HYDROCHLORIDE
     Indication: ANXIETY
     Dosage: UNK
     Route: 065

REACTIONS (2)
  - Maternal exposure during pregnancy [Unknown]
  - Gestational hypertension [Recovered/Resolved]

NARRATIVE: CASE EVENT DATE: 20191113
